FAERS Safety Report 13798555 (Version 1)
Quarter: 2017Q3

REPORT INFORMATION
  Report Type: Spontaneous
  Country: IT (occurrence: IT)
  Receive Date: 20170727
  Receipt Date: 20170727
  Transmission Date: 20171127
  Serious: Yes (Hospitalization)
  Sender: FDA-Public Use
  Company Number: IT-PFIZER INC-2619516

PATIENT
  Age: 11 Year
  Sex: Female

DRUGS (1)
  1. CEFOTAXIME [Suspect]
     Active Substance: CEFOTAXIME SODIUM
     Indication: APPENDICITIS
     Dosage: 1 G, ONE TIME
     Route: 042
     Dates: start: 20030517, end: 20030517

REACTIONS (2)
  - Urticaria [Recovered/Resolved]
  - Formication [Recovered/Resolved]

NARRATIVE: CASE EVENT DATE: 20030517
